FAERS Safety Report 6884111-7 (Version None)
Quarter: 2010Q3

REPORT INFORMATION
  Report Type: 
  Country: None (occurrence: None)
  Receive Date: 20100729
  Receipt Date: 20100719
  Transmission Date: 20110219
  Serious: Yes (Hospitalization)
  Sender: FDA-Public Use
  Company Number: AU-B.I. PHARMACEUTICALS,INC./RIDGEFIELD-2010-BP-07684AU

PATIENT
  Sex: Male
  Weight: 84 kg

DRUGS (6)
  1. MICARDIS [Suspect]
     Indication: ESSENTIAL HYPERTENSION
     Dosage: 80 MG
     Dates: start: 20060101, end: 20100602
  2. PANADOL OSTEO 650 [Concomitant]
  3. FLOMAXTRA [Concomitant]
  4. DIGESIC [Concomitant]
  5. STATINS [Concomitant]
  6. NSAI [Concomitant]

REACTIONS (3)
  - HYPOTENSION [None]
  - SYNCOPE [None]
  - TOOTH INFECTION [None]
